FAERS Safety Report 16196981 (Version 1)
Quarter: 2019Q2

REPORT INFORMATION
  Report Type: Spontaneous
  Country: US (occurrence: US)
  Receive Date: 20190415
  Receipt Date: 20190415
  Transmission Date: 20190711
  Serious: No
  Sender: FDA-Public Use
  Company Number: US-PFIZER INC-2019153009

PATIENT
  Age: 52 Year
  Sex: Female
  Weight: 104.76 kg

DRUGS (3)
  1. LYRICA [Suspect]
     Active Substance: PREGABALIN
     Indication: MYELITIS TRANSVERSE
     Dosage: 100 MG, 3X/DAY
     Route: 048
     Dates: start: 201702
  2. BACLOFEN. [Concomitant]
     Active Substance: BACLOFEN
     Dosage: 10 MG, AS NEEDED
     Route: 048
     Dates: start: 201702
  3. BACLOFEN. [Concomitant]
     Active Substance: BACLOFEN
     Indication: MYELITIS TRANSVERSE
     Dosage: 10 MG, 2X/DAY(EVERY 12 HOURS)
     Route: 048
     Dates: start: 201702

REACTIONS (2)
  - Loss of personal independence in daily activities [Unknown]
  - Product use in unapproved indication [Not Recovered/Not Resolved]

NARRATIVE: CASE EVENT DATE: 201702
